FAERS Safety Report 9034512 (Version 4)
Quarter: 2013Q4

REPORT INFORMATION
  Report Type: Spontaneous
  Country: JP (occurrence: JP)
  Receive Date: 20130129
  Receipt Date: 20131104
  Transmission Date: 20140711
  Serious: Yes (Other)
  Sender: FDA-Public Use
  Company Number: JP-009507513-1301JPN012241

PATIENT
  Age: 36 Year
  Sex: Female
  Weight: 47 kg

DRUGS (4)
  1. ESLAX [Suspect]
     Indication: NEUROMUSCULAR BLOCKING THERAPY
     Dosage: 40 MG, QD
     Route: 042
     Dates: start: 20130121, end: 20130121
  2. DIPRIVAN [Suspect]
     Indication: INDUCTION OF ANAESTHESIA
     Dosage: 15 ML, QD
     Route: 042
     Dates: start: 20130121, end: 20130121
  3. ANAPEINE [Concomitant]
     Indication: EPIDURAL ANAESTHESIA
     Dosage: 2 ML, QD
     Route: 008
     Dates: start: 20130121, end: 20130121
  4. SEVOFRANE [Concomitant]
     Indication: GENERAL ANAESTHESIA
     Dosage: 1.5 %, QD
     Route: 055
     Dates: start: 20130121, end: 20130121

REACTIONS (3)
  - Oedema peripheral [Recovered/Resolved]
  - Feeling hot [Recovered/Resolved]
  - Erythema [Recovered/Resolved]
